FAERS Safety Report 20289177 (Version 1)
Quarter: 2022Q1

REPORT INFORMATION
  Report Type: Spontaneous
  Country: US (occurrence: US)
  Receive Date: 20220104
  Receipt Date: 20220104
  Transmission Date: 20220423
  Serious: No
  Sender: FDA-Public Use
  Company Number: US-GSKCCFUS-Case-01062996_AE-63001

PATIENT
  Sex: Female

DRUGS (1)
  1. PAXIL [Suspect]
     Active Substance: PAROXETINE HYDROCHLORIDE
     Indication: Product used for unknown indication
     Dosage: 40 MG, QD, SHE WAS TAKING PAXIL FOR OVER 20 YEARS
     Route: 065
     Dates: start: 20010101

REACTIONS (4)
  - Facial spasm [Unknown]
  - Blepharospasm [Unknown]
  - Incontinence [Unknown]
  - Product complaint [Unknown]
